FAERS Safety Report 16747038 (Version 3)
Quarter: 2019Q4

REPORT INFORMATION
  Report Type: Spontaneous
  Country: US (occurrence: US)
  Receive Date: 20190827
  Receipt Date: 20191004
  Transmission Date: 20200122
  Serious: No
  Sender: FDA-Public Use
  Company Number: US-SA-2019SA237079

PATIENT
  Age: 48 Year
  Sex: Male

DRUGS (3)
  1. CABLIVI [Suspect]
     Active Substance: CAPLACIZUMAB-YHDP
     Indication: THROMBOTIC MICROANGIOPATHY
     Dosage: 11 MG, QD
     Route: 058
     Dates: start: 20190821
  2. RITUXAN [Concomitant]
     Active Substance: RITUXIMAB
  3. BENADRYL [Concomitant]
     Active Substance: DIPHENHYDRAMINE HYDROCHLORIDE
     Route: 048

REACTIONS (26)
  - Arthralgia [Unknown]
  - Tenderness [Unknown]
  - Blood glucose increased [Unknown]
  - Fibrin D dimer increased [Unknown]
  - Nucleated red cells [Unknown]
  - Lymphocyte percentage decreased [Unknown]
  - Reticulocyte percentage increased [Unknown]
  - Blood pressure increased [Unknown]
  - Reticulocyte count increased [Unknown]
  - White blood cell count increased [Unknown]
  - Monocyte count increased [Unknown]
  - International normalised ratio increased [Unknown]
  - Red blood cell count decreased [Unknown]
  - Haemoglobin decreased [Unknown]
  - Eosinophil count decreased [Unknown]
  - Acne [Not Recovered/Not Resolved]
  - Headache [Recovered/Resolved]
  - Lymphocyte count decreased [Unknown]
  - Haematuria [Recovered/Resolved]
  - Haematocrit decreased [Unknown]
  - Neutrophil percentage increased [Unknown]
  - Insomnia [Recovered/Resolved]
  - Red cell distribution width increased [Unknown]
  - Platelet count decreased [Unknown]
  - Neutrophil count increased [Unknown]
  - Rash [Unknown]

NARRATIVE: CASE EVENT DATE: 20190819
